FAERS Safety Report 8723625 (Version 2)
Quarter: 2013Q4

REPORT INFORMATION
  Report Type: Spontaneous
  Country: US (occurrence: US)
  Receive Date: 20120815
  Receipt Date: 20131101
  Transmission Date: 20140711
  Serious: Yes (Hospitalization)
  Sender: FDA-Public Use
  Company Number: US-009507513-1208USA004680

PATIENT
  Sex: 0

DRUGS (2)
  1. VICTRELIS [Suspect]
     Dosage: UNK
     Dates: start: 201206, end: 2012
  2. REBETOL [Suspect]

REACTIONS (1)
  - Anaemia [Not Recovered/Not Resolved]
